FAERS Safety Report 7734283-7 (Version None)
Quarter: 2011Q3

REPORT INFORMATION
  Report Type: 
  Country: None (occurrence: None)
  Receive Date: 20110907
  Receipt Date: 20110829
  Transmission Date: 20111222
  Serious: Yes (Disabling)
  Sender: FDA-Public Use
  Company Number: FR-ABBOTT-11P-056-0729698-00

PATIENT
  Sex: Female
  Weight: 74 kg

DRUGS (20)
  1. HUMIRA [Suspect]
     Indication: SPONDYLITIS
     Route: 058
     Dates: start: 20100520, end: 20110519
  2. GAVISCON [Concomitant]
     Indication: DYSPHAGIA
     Dates: start: 20100622, end: 20100901
  3. ESTRADERM [Concomitant]
     Indication: PROPHYLAXIS
  4. MONAZOL [Concomitant]
     Indication: VULVOVAGINAL MYCOTIC INFECTION
     Dates: start: 20110409, end: 20110409
  5. LANSOPRAZOLE [Concomitant]
     Indication: HIATUS HERNIA
     Dates: start: 19900101, end: 20101101
  6. PROGESTERONE [Concomitant]
     Indication: PROPHYLAXIS
  7. MOBIC [Concomitant]
     Indication: SPONDYLITIS
     Dates: start: 20061109
  8. LEVOTHYROXINE SODIUM [Concomitant]
     Indication: HYPOTHYROIDISM
  9. RABEPRAZOLE SODIUM [Concomitant]
     Indication: HIATUS HERNIA
     Dates: start: 20101102
  10. VOLTAREN [Concomitant]
     Indication: CONTUSION
     Dates: start: 20101210, end: 20101211
  11. FLECAINIDE ACETATE [Concomitant]
     Indication: ARRHYTHMIA
     Dates: start: 19900101
  12. XYZAL [Concomitant]
     Indication: INJECTION SITE REACTION
     Dates: start: 20101007
  13. XYZAL [Concomitant]
     Indication: PROPHYLAXIS
  14. HUMIRA [Suspect]
     Dates: start: 20110620
  15. FLECAINIDE ACETATE [Concomitant]
     Indication: ATRIAL FIBRILLATION
  16. ESTRADERM [Concomitant]
     Indication: MENOPAUSE
     Dates: end: 20100908
  17. ASCORBIC ACID [Concomitant]
     Indication: ASTHENIA
     Dates: start: 20071001
  18. ASCORBIC ACID [Concomitant]
     Indication: PROPHYLAXIS
  19. TROPHICREME [Concomitant]
     Indication: VULVOVAGINAL DRYNESS
     Dosage: 0.1%
     Dates: start: 20110111, end: 20110424
  20. PROGESTERONE [Concomitant]
     Indication: MENOPAUSE
     Dates: end: 20100908

REACTIONS (1)
  - MACULAR DEGENERATION [None]
